FAERS Safety Report 11670851 (Version 3)
Quarter: 2016Q1

REPORT INFORMATION
  Report Type: Report from Study
  Country: US (occurrence: US)
  Receive Date: 20151028
  Receipt Date: 20160321
  Transmission Date: 20160525
  Serious: Yes (Other)
  Sender: FDA-Public Use
  Company Number: US-AMGEN-USASP2015111715

PATIENT
  Age: 33 Year
  Sex: Female

DRUGS (2)
  1. ENBREL [Suspect]
     Active Substance: ETANERCEPT
     Indication: PSORIATIC ARTHROPATHY
  2. ENBREL [Suspect]
     Active Substance: ETANERCEPT
     Indication: PSORIASIS
     Dosage: 50 MG, QWK
     Route: 065
     Dates: start: 20140821

REACTIONS (6)
  - Foot fracture [Unknown]
  - Mobility decreased [Unknown]
  - Fall [Unknown]
  - Osteomyelitis [Unknown]
  - Ankle fracture [Unknown]
  - Psoriasis [Unknown]

NARRATIVE: CASE EVENT DATE: 2016
